FAERS Safety Report 8815550 (Version 1)
Quarter: 2012Q4

REPORT INFORMATION
  Report Type: 
  Country: JP (occurrence: JP)
  Receive Date: 20120928
  Receipt Date: 20120928
  Transmission Date: 20130627
  Serious: Yes (Hospitalization)
  Sender: FDA-Public Use
  Company Number: JP-BAYER-2012-098488

PATIENT
  Age: 1 Year
  Sex: Male

DRUGS (1)
  1. ACETYLSALICYLIC ACID({=100 MG) [Suspect]
     Indication: KAWASAKI^S DISEASE
     Route: 048

REACTIONS (2)
  - Gastric ulcer [None]
  - Gastric stenosis [None]
